FAERS Safety Report 4704365-2 (Version None)
Quarter: 2005Q2

REPORT INFORMATION
  Report Type: 
  Country: None (occurrence: None)
  Receive Date: 20050628
  Receipt Date: 20050613
  Transmission Date: 20051028
  Serious: Yes (Life-Threatening, Hospitalization)
  Sender: FDA-Public Use
  Company Number: 200510890GDS

PATIENT
  Age: 23 Year
  Sex: Female

DRUGS (7)
  1. ADALAT [Suspect]
     Indication: PREMATURE LABOUR
     Dosage: 40 MG, TOTAL DAILY, ORAL
     Route: 048
     Dates: start: 20031018
  2. ADALAT [Suspect]
     Indication: TOCOLYSIS
     Dosage: 40 MG, TOTAL DAILY, ORAL
     Route: 048
     Dates: start: 20031018
  3. NIFEDIPINE [Suspect]
     Indication: PREMATURE LABOUR
     Dosage: 40 MG, TOTAL DAILY, ORAL
     Route: 048
  4. NIFEDIPINE [Suspect]
     Indication: TOCOLYSIS
     Dosage: 40 MG, TOTAL DAILY, ORAL
     Route: 048
  5. ATOSIBAN [Concomitant]
  6. STEROIDS [Concomitant]
  7. INDOMETHACIN [Concomitant]

REACTIONS (15)
  - AORTA HYPOPLASIA [None]
  - BRADYCARDIA FOETAL [None]
  - BRAIN OEDEMA [None]
  - BREECH PRESENTATION [None]
  - DRUG EXPOSURE DURING PREGNANCY [None]
  - FOETAL CARDIAC DISORDER [None]
  - FOETAL DISORDER [None]
  - HEART SOUNDS ABNORMAL [None]
  - HYPOPLASTIC LEFT HEART SYNDROME [None]
  - HYPOTENSION [None]
  - INTRA-UTERINE DEATH [None]
  - PARVOVIRUS INFECTION [None]
  - PLACENTAL DISORDER [None]
  - PLACENTAL INSUFFICIENCY [None]
  - STREPTOCOCCAL INFECTION [None]
